FAERS Safety Report 13315253 (Version 2)
Quarter: 2017Q1

REPORT INFORMATION
  Report Type: Spontaneous
  Country: BE (occurrence: BE)
  Receive Date: 20170309
  Receipt Date: 20170324
  Transmission Date: 20170428
  Serious: Yes (Hospitalization, Other)
  Sender: FDA-Public Use
  Company Number: BE-ASTRAZENECA-2017SE24735

PATIENT
  Age: 25232 Day
  Sex: Female
  Weight: 60 kg

DRUGS (18)
  1. OXYNORM [Concomitant]
     Active Substance: OXYCODONE HYDROCHLORIDE
     Dosage: 5 MG MAXIMUM: 30MG/24 HOURS
  2. MEDROL?A [Concomitant]
  3. ACETYLCYSTEINE. [Concomitant]
     Active Substance: ACETYLCYSTEINE
     Dosage: 1 BAG 2 TIMES A DAY
     Dates: start: 20170208
  4. BURINEX [Concomitant]
     Active Substance: BUMETANIDE
     Dosage: LEO PHARMA
     Dates: start: 20170125
  5. MOVICOL NEUTRAL BAG [Concomitant]
     Dosage: 13.7GR PER BAG ? MAXIMUM: 2 BAGS PER 24 HOURS
  6. DUOVENT [Concomitant]
     Active Substance: FENOTEROL HYDROBROMIDE
     Dosage: 50/20 MCG/DOSE 1 PUFF ? MAXIMUM: 4 PUFFS/24 HOURS ? INTERVAL 6H (IF DYSPNEA)
  7. TAGRISSO [Suspect]
     Active Substance: OSIMERTINIB
     Indication: NON-SMALL CELL LUNG CANCER
     Dosage: 80.0MG UNKNOWN
     Route: 048
     Dates: start: 20161028, end: 20170121
  8. LYRICA [Concomitant]
     Active Substance: PREGABALIN
  9. AMLODIPINE [Concomitant]
     Active Substance: AMLODIPINE BESYLATE
     Dosage: SANDOZ
     Dates: start: 20170121
  10. SYMBICORT [Concomitant]
     Active Substance: BUDESONIDE\FORMOTEROL FUMARATE DIHYDRATE
     Dosage: 160/4.5 MCG 2 PUFFS 2 TIMES A DAY
  11. EMCONCOR MITIS [Concomitant]
     Dosage: 0.5 TABLET ONCE A DAY
  12. ALDACTONE [Concomitant]
     Active Substance: SPIRONOLACTONE
     Dosage: TABLETS 50 MG 1 TABLET A DAY
  13. TRANSTEC [Concomitant]
     Active Substance: BUPRENORPHINE
     Dosage: 35MCG/H EVERY 3 DAYS: MORNING 1 SYST. TD (TO CHANGE TONIGHT)
  14. MONTELUKAST [Concomitant]
     Active Substance: MONTELUKAST SODIUM
     Dosage: 10MG 1 TABLET A DAY
  15. ASAFLOW [Concomitant]
     Active Substance: ASPIRIN
     Dosage: 80MG 1 TABLET A DAY
  16. ATROVENT [Concomitant]
     Active Substance: IPRATROPIUM BROMIDE
     Dosage: 2 ML 0.25MG + LYSOMUCIL 10% INJ/LOC AMP 3ML 300 MG 1 AMP 4 TIMES A DAY
  17. LYRICA [Concomitant]
     Active Substance: PREGABALIN
  18. DAFALGAN [Concomitant]
     Active Substance: ACETAMINOPHEN

REACTIONS (9)
  - Lung infiltration [Unknown]
  - Cardiac failure [Unknown]
  - Acute respiratory failure [Unknown]
  - Cardiomyopathy [Recovered/Resolved]
  - Acute pulmonary oedema [Recovered/Resolved]
  - Metastasis [Unknown]
  - Atrial fibrillation [Recovered/Resolved]
  - Pleural effusion [Unknown]
  - Metastases to liver [Unknown]

NARRATIVE: CASE EVENT DATE: 20170121
